FAERS Safety Report 17244035 (Version 11)
Quarter: 2021Q2

REPORT INFORMATION
  Report Type: Report from Study
  Country: CO (occurrence: CO)
  Receive Date: 20200107
  Receipt Date: 20210405
  Transmission Date: 20210716
  Serious: Yes (Other)
  Sender: FDA-Public Use
  Company Number: CO-JNJFOC-20190533958

PATIENT
  Age: 64 Year
  Sex: Female
  Weight: 70 kg

DRUGS (11)
  1. SIMPONI [Suspect]
     Active Substance: GOLIMUMAB
     Route: 058
     Dates: start: 20200206
  2. SIMPONI [Suspect]
     Active Substance: GOLIMUMAB
     Route: 058
     Dates: start: 20190706, end: 20190706
  3. SIMPONI [Suspect]
     Active Substance: GOLIMUMAB
     Route: 058
     Dates: start: 20190409, end: 20190409
  4. MESALAZINE [Concomitant]
     Active Substance: MESALAMINE
     Dosage: 3 GRAMS MORNING, AFTERNOON AND NIGHT
     Route: 065
  5. SIMPONI [Suspect]
     Active Substance: GOLIMUMAB
     Route: 058
     Dates: start: 20190311, end: 20190311
  6. PREDNISOLONE. [Suspect]
     Active Substance: PREDNISOLONE
     Dosage: 12 TABLETS A DAY.
     Route: 065
  7. SIMPONI [Suspect]
     Active Substance: GOLIMUMAB
     Indication: COLITIS ULCERATIVE
     Route: 058
     Dates: start: 201903, end: 201903
  8. SIMPONI [Suspect]
     Active Substance: GOLIMUMAB
     Route: 058
     Dates: start: 20191114, end: 20191219
  9. PREDNISOLONE. [Suspect]
     Active Substance: PREDNISOLONE
     Route: 065
  10. SIMPONI [Suspect]
     Active Substance: GOLIMUMAB
     Route: 058
  11. SIMPONI [Suspect]
     Active Substance: GOLIMUMAB
     Route: 058
     Dates: end: 20210316

REACTIONS (14)
  - Inappropriate schedule of product administration [Unknown]
  - Influenza [Recovering/Resolving]
  - Hepatic steatosis [Not Recovered/Not Resolved]
  - Blood glucose increased [Recovering/Resolving]
  - Colitis ulcerative [Recovered/Resolved]
  - Dermatitis [Recovering/Resolving]
  - Helicobacter gastritis [Recovering/Resolving]
  - Cholangitis [Recovered/Resolved]
  - Product dose omission issue [Unknown]
  - Immune system disorder [Recovering/Resolving]
  - Large intestine polyp [Not Recovered/Not Resolved]
  - Off label use [Unknown]
  - Incorrect dose administered [Unknown]
  - Drug ineffective [Unknown]

NARRATIVE: CASE EVENT DATE: 20190409
